FAERS Safety Report 8538414-0 (Version None)
Quarter: 2012Q3

REPORT INFORMATION
  Report Type: 
  Country: None (occurrence: None)
  Receive Date: 20120726
  Receipt Date: 20120723
  Transmission Date: 20120928
  Serious: No
  Sender: FDA-Public Use
  Company Number: US-PFIZER INC-2012178654

PATIENT
  Sex: Female

DRUGS (1)
  1. ZOLOFT [Suspect]
     Dosage: UNK
     Dates: start: 20120101

REACTIONS (7)
  - CONSTIPATION [None]
  - INSOMNIA [None]
  - NAUSEA [None]
  - FATIGUE [None]
  - TREMOR [None]
  - DECREASED APPETITE [None]
  - DIARRHOEA [None]
